FAERS Safety Report 6697394-3 (Version None)
Quarter: 2010Q2

REPORT INFORMATION
  Report Type: 
  Country: None (occurrence: None)
  Receive Date: 20100426
  Receipt Date: 20100412
  Transmission Date: 20101027
  Serious: Yes (Hospitalization)
  Sender: FDA-Public Use
  Company Number: DE-WATSON-2010-05401

PATIENT
  Age: 70 Year
  Sex: Male

DRUGS (5)
  1. MICROZIDE [Suspect]
     Indication: DIURETIC THERAPY
     Dosage: UNK
  2. QUETIAPINE [Suspect]
     Indication: DRUG USE FOR UNKNOWN INDICATION
     Dosage: 12.5 MG, UNK
  3. RASAGILINE [Suspect]
     Indication: ON AND OFF PHENOMENON
     Dosage: UNK
     Route: 065
  4. ROTIGOTINE [Suspect]
     Indication: ON AND OFF PHENOMENON
     Dosage: 8 MG INCREASED TO 16 MG
     Route: 065
  5. LEVODOPA [Concomitant]
     Indication: PARKINSON'S DISEASE
     Dosage: 400 MG, UNK

REACTIONS (1)
  - RHABDOMYOLYSIS [None]
